FAERS Safety Report 7018655-4 (Version None)
Quarter: 2010Q3

REPORT INFORMATION
  Report Type: 
  Country: None (occurrence: None)
  Receive Date: 20100928
  Receipt Date: 20100917
  Transmission Date: 20110219
  Serious: Yes (Disabling, Other)
  Sender: FDA-Public Use
  Company Number: US-MERCK-0604USA03108

PATIENT
  Age: 77 Year
  Sex: Female
  Weight: 68 kg

DRUGS (3)
  1. FOSAMAX [Suspect]
     Indication: OSTEOPOROSIS
     Route: 048
     Dates: start: 19990401, end: 20060401
  2. FOSAMAX [Suspect]
     Route: 048
     Dates: start: 19990101
  3. FOSAMAX [Suspect]
     Route: 048
     Dates: start: 19991105, end: 20051001

REACTIONS (43)
  - ANIMAL SCRATCH [None]
  - ANXIETY [None]
  - AORTIC CALCIFICATION [None]
  - ASTHMA [None]
  - BONE DENSITY DECREASED [None]
  - BREAST MASS [None]
  - CELLULITIS [None]
  - CORONARY ARTERY DISEASE [None]
  - DEPRESSION [None]
  - DIARRHOEA [None]
  - DIFFUSE LARGE B-CELL LYMPHOMA [None]
  - FISTULA [None]
  - GENERALISED OEDEMA [None]
  - HEPATIC CYST [None]
  - HIATUS HERNIA [None]
  - HYDRONEPHROSIS [None]
  - HYPERCHOLESTEROLAEMIA [None]
  - IMPAIRED HEALING [None]
  - LYMPHADENOPATHY [None]
  - LYMPHOCYTE MORPHOLOGY [None]
  - MASTICATION DISORDER [None]
  - NON-HODGKIN'S LYMPHOMA [None]
  - ORAL DISCOMFORT [None]
  - ORAL DISORDER [None]
  - ORAL PAIN [None]
  - ORAL TORUS [None]
  - OSTEOARTHRITIS [None]
  - OSTEOMYELITIS [None]
  - OSTEONECROSIS OF JAW [None]
  - PARAESTHESIA ORAL [None]
  - PATHOLOGICAL FRACTURE [None]
  - PERIODONTAL DISEASE [None]
  - POLYP [None]
  - POSTOPERATIVE WOUND INFECTION [None]
  - RETROPERITONEAL LYMPHADENOPATHY [None]
  - SCOLIOSIS [None]
  - SPINAL COLUMN STENOSIS [None]
  - SPINAL OSTEOARTHRITIS [None]
  - SPONDYLOLISTHESIS [None]
  - SWELLING [None]
  - THERMAL BURN [None]
  - TOOTH DISORDER [None]
  - WEIGHT DECREASED [None]
